FAERS Safety Report 6457944-9 (Version None)
Quarter: 2009Q4

REPORT INFORMATION
  Report Type: 
  Country: None (occurrence: None)
  Receive Date: 20091125
  Receipt Date: 20091119
  Transmission Date: 20100525
  Serious: Yes (Life-Threatening, Hospitalization, Other)
  Sender: FDA-Public Use
  Company Number: AU-AMGEN-STX355851

PATIENT
  Sex: Female
  Weight: 77 kg

DRUGS (7)
  1. VECTIBIX [Suspect]
     Indication: COLORECTAL CANCER
     Route: 042
     Dates: start: 20090114
  2. IRINOTECAN HCL [Concomitant]
     Dates: start: 20080101
  3. FLUOROURACIL [Concomitant]
     Dates: start: 20080101
  4. FOLINIC ACID [Concomitant]
     Dates: start: 20080101
  5. ONDANSETRON [Concomitant]
     Dates: start: 20080101
  6. DEXAMETHASONE TAB [Concomitant]
     Dates: start: 20080101
  7. FLUOXETINE [Concomitant]
     Dates: start: 20090501

REACTIONS (8)
  - FALL [None]
  - HYPOCALCAEMIA [None]
  - HYPOKALAEMIA [None]
  - HYPOMAGNESAEMIA [None]
  - HYPOPHOSPHATAEMIA [None]
  - JOINT DISLOCATION [None]
  - RASH [None]
  - WRIST FRACTURE [None]
